FAERS Safety Report 16423055 (Version 2)
Quarter: 2019Q2

REPORT INFORMATION
  Report Type: Spontaneous
  Country: CH (occurrence: CH)
  Receive Date: 20190612
  Receipt Date: 20190617
  Transmission Date: 20190711
  Serious: Yes (Hospitalization)
  Sender: FDA-Public Use
  Company Number: CH-ANIPHARMA-2019-CH-000029

PATIENT
  Age: 69 Year
  Sex: Male

DRUGS (10)
  1. ASPIRIN CARDIO [Concomitant]
     Active Substance: ASPIRIN
     Dosage: UNK
     Route: 065
  2. TORASEMIDE [Suspect]
     Active Substance: TORSEMIDE
     Dosage: 1 DF UNK
     Route: 048
  3. ATACAND [Suspect]
     Active Substance: CANDESARTAN CILEXETIL
     Indication: PRODUCT USED FOR UNKNOWN INDICATION
     Dosage: 8 MG UNK
     Route: 048
     Dates: start: 201903, end: 20190407
  4. BELOC ZOK [Suspect]
     Active Substance: METOPROLOL SUCCINATE
     Dosage: 1 DF UNK
     Route: 048
  5. ATORVASTATIN [Concomitant]
     Active Substance: ATORVASTATIN
     Dosage: UNK
     Route: 065
  6. CARDURA CR [Suspect]
     Active Substance: DOXAZOSIN MESYLATE
     Dosage: 1 DF UNK
     Route: 048
     Dates: end: 20190407
  7. METOLAZONE. [Suspect]
     Active Substance: METOLAZONE
     Dosage: 5 MG UNK
     Route: 048
  8. ZANIDIP [Suspect]
     Active Substance: LERCANIDIPINE HYDROCHLORIDE
     Dosage: 10 MG UNK / UNK
     Route: 048
  9. PANTOZOL [Concomitant]
     Active Substance: PANTOPRAZOLE SODIUM
     Dosage: UNK
     Route: 065
  10. SIFROL [Concomitant]
     Active Substance: PRAMIPEXOLE
     Dosage: UNK
     Route: 065

REACTIONS (2)
  - Orthostatic hypotension [Recovered/Resolved with Sequelae]
  - Syncope [Recovered/Resolved with Sequelae]

NARRATIVE: CASE EVENT DATE: 20190407
